FAERS Safety Report 9948433 (Version 1)
Quarter: 2014Q1

REPORT INFORMATION
  Report Type: Spontaneous
  Country: US (occurrence: None)
  Receive Date: 20140228
  Receipt Date: 20140228
  Transmission Date: 20141002
  Serious: Yes (Disabling)
  Sender: FDA-Public Use
  Company Number: DL2014-0187

PATIENT
  Age: 40 Year
  Sex: Female

DRUGS (2)
  1. MIFEPRISTONE [Suspect]
     Indication: ABORTION INDUCED
     Route: 048
     Dates: start: 20131201
  2. MISOPROSTOL [Suspect]
     Route: 002
     Dates: start: 20131207

REACTIONS (2)
  - Haemorrhage [None]
  - Anaemia [None]
